FAERS Safety Report 19238941 (Version 2)
Quarter: 2021Q2

REPORT INFORMATION
  Report Type: Spontaneous
  Country: DE (occurrence: DE)
  Receive Date: 20210510
  Receipt Date: 20210513
  Transmission Date: 20210717
  Serious: Yes (Other)
  Sender: FDA-Public Use
  Company Number: DE-ASTRAZENECA-2021A401018

PATIENT
  Sex: Female

DRUGS (4)
  1. KAPPAREST [Concomitant]
     Dates: start: 202102
  2. TAGRISSO [Suspect]
     Active Substance: OSIMERTINIB
     Route: 048
     Dates: start: 2018
  3. PROCAIN [Concomitant]
     Indication: NEUROPATHY PERIPHERAL
     Dates: start: 202011
  4. FERRO SANOL [Concomitant]
     Active Substance: FERROUS GLYCINE SULFATE

REACTIONS (1)
  - Disease progression [Not Recovered/Not Resolved]
